FAERS Safety Report 7681775-5 (Version None)
Quarter: 2011Q3

REPORT INFORMATION
  Report Type: 
  Country: None (occurrence: None)
  Receive Date: 20110812
  Receipt Date: 20110803
  Transmission Date: 20111222
  Serious: Yes (Other)
  Sender: FDA-Public Use
  Company Number: US-ASTRAZENECA-2010SE12924

PATIENT
  Age: 48 Year
  Sex: Male

DRUGS (10)
  1. SEROQUEL [Suspect]
     Route: 048
     Dates: start: 20090418
  2. ATIVAN [Concomitant]
     Indication: ANXIETY
  3. SEROQUEL [Suspect]
     Indication: SLEEP DISORDER
     Route: 048
     Dates: start: 20090401
  4. ZIPSOR [Concomitant]
  5. CEREFOLIN [Concomitant]
  6. VITAMIN B [Concomitant]
  7. THYMINE [Concomitant]
  8. LIDOCAINE [Concomitant]
  9. LOVAZA [Concomitant]
  10. CELEXA [Concomitant]

REACTIONS (6)
  - BACK INJURY [None]
  - FATIGUE [None]
  - ROAD TRAFFIC ACCIDENT [None]
  - CONCUSSION [None]
  - SPINAL COLUMN STENOSIS [None]
  - INTERVERTEBRAL DISC PROTRUSION [None]
